FAERS Safety Report 8198084-0 (Version None)
Quarter: 2012Q1

REPORT INFORMATION
  Report Type: 
  Country: None (occurrence: None)
  Receive Date: 20120309
  Receipt Date: 20120307
  Transmission Date: 20120608
  Serious: Yes (Hospitalization)
  Sender: FDA-Public Use
  Company Number: JP-EISAI INC-E2020-10406-SPO-JP

PATIENT
  Age: 83 Year
  Sex: Female

DRUGS (7)
  1. DEPAS [Concomitant]
     Indication: DEPRESSION
     Route: 048
  2. BASEN OD [Concomitant]
     Indication: DIABETES MELLITUS
     Route: 048
  3. ARICEPT [Suspect]
     Indication: DEMENTIA ALZHEIMER'S TYPE
     Route: 048
     Dates: start: 20120120, end: 20120205
  4. AMARYL [Concomitant]
     Indication: DIABETES MELLITUS
     Route: 048
  5. NESINA [Concomitant]
     Indication: DIABETES MELLITUS
     Route: 048
  6. ARICEPT [Suspect]
     Route: 048
     Dates: start: 20120206
  7. PAXIL [Concomitant]
     Indication: DEPRESSION
     Route: 048

REACTIONS (1)
  - SUDDEN HEARING LOSS [None]
